FAERS Safety Report 12470576 (Version 1)
Quarter: 2016Q2

REPORT INFORMATION
  Report Type: Spontaneous
  Country: US (occurrence: None)
  Receive Date: 20160615
  Receipt Date: 20160615
  Transmission Date: 20160815
  Serious: No
  Sender: FDA-Public Use
  Company Number: None

PATIENT
  Sex: Female

DRUGS (1)
  1. METFORMIN [Suspect]
     Active Substance: METFORMIN HYDROCHLORIDE

REACTIONS (7)
  - Blood glucose increased [None]
  - Peripheral swelling [None]
  - Burning sensation [None]
  - Visual impairment [None]
  - Limb discomfort [None]
  - Cystitis [None]
  - Blindness unilateral [None]
